FAERS Safety Report 6411115-0 (Version None)
Quarter: 2009Q4

REPORT INFORMATION
  Report Type: 
  Country: None (occurrence: None)
  Receive Date: 20091022
  Receipt Date: 20091016
  Transmission Date: 20100525
  Serious: Yes (Death)
  Sender: FDA-Public Use
  Company Number: FR-PFIZER INC-2009284095

PATIENT
  Age: 84 Year

DRUGS (8)
  1. TAHOR [Suspect]
     Indication: HYPERCHOLESTEROLAEMIA
     Dosage: 80 MG, 1X/DAY
     Route: 048
     Dates: end: 20090814
  2. OMEPRAZOLE [Concomitant]
  3. ALLOPURINOL [Concomitant]
  4. PRAXILENE [Concomitant]
  5. CALCIDIA [Concomitant]
  6. ACUPAN [Concomitant]
  7. ACTRAPID [Concomitant]
  8. UN-ALFA [Concomitant]

REACTIONS (2)
  - RENAL FAILURE ACUTE [None]
  - RHABDOMYOLYSIS [None]
